FAERS Safety Report 20623757 (Version 3)
Quarter: 2022Q2

REPORT INFORMATION
  Report Type: Spontaneous
  Country: JP (occurrence: JP)
  Receive Date: 20220322
  Receipt Date: 20220502
  Transmission Date: 20220721
  Serious: Yes (Death, Other)
  Sender: FDA-Public Use
  Company Number: JP-MSD-M2022-11365

PATIENT
  Age: 67 Year
  Sex: Male

DRUGS (6)
  1. MOLNUPIRAVIR [Suspect]
     Active Substance: MOLNUPIRAVIR
     Indication: COVID-19 treatment
     Dosage: 800 MILLIGRAM, BID
     Route: 048
     Dates: start: 20220301, end: 20220301
  2. CODEINE PHOSPHATE [Concomitant]
     Active Substance: CODEINE PHOSPHATE
     Dosage: UNK
     Route: 065
  3. DEXTROMETHORPHAN HYDROBROMIDE [Concomitant]
     Active Substance: DEXTROMETHORPHAN HYDROBROMIDE
     Dosage: UNK
     Route: 065
  4. ROZEREM [Concomitant]
     Active Substance: RAMELTEON
     Dosage: UNK
     Route: 065
  5. BELSOMRA [Concomitant]
     Active Substance: SUVOREXANT
     Dosage: UNK
     Route: 048
  6. OMEPRAZOLE SODIUM [Concomitant]
     Active Substance: OMEPRAZOLE SODIUM
     Dosage: UNK
     Route: 065

REACTIONS (2)
  - Interstitial lung disease [Fatal]
  - COVID-19 [Fatal]

NARRATIVE: CASE EVENT DATE: 20220301
